FAERS Safety Report 18112563 (Version 1)
Quarter: 2020Q3

REPORT INFORMATION
  Report Type: Spontaneous
  Country: US (occurrence: US)
  Receive Date: 20200804
  Receipt Date: 20200804
  Transmission Date: 20201103
  Serious: Yes (Other)
  Sender: FDA-Public Use
  Company Number: None

PATIENT
  Age: 48 Year
  Sex: Female

DRUGS (1)
  1. UNIVERSITY MEDICAL PHARMACEUTICALS HAND SANITIZER [Suspect]
     Active Substance: ALCOHOL
     Indication: COVID-19 PROPHYLAXIS
     Dosage: ?          QUANTITY:8 OUNCE(S);?
     Route: 061

REACTIONS (2)
  - Thermal burn [None]
  - Blister [None]

NARRATIVE: CASE EVENT DATE: 20200728
